FAERS Safety Report 7212193-1 (Version None)
Quarter: 2010Q4

REPORT INFORMATION
  Report Type: 
  Country: None (occurrence: None)
  Receive Date: 20101227
  Receipt Date: 20101214
  Transmission Date: 20110411
  Serious: Yes (Hospitalization)
  Sender: FDA-Public Use
  Company Number: 783083

PATIENT
  Age: 10 Year
  Sex: Male

DRUGS (10)
  1. CYTARABINE [Suspect]
     Indication: ACUTE LYMPHOCYTIC LEUKAEMIA
     Dosage: INTRATHECAL
     Route: 037
  2. METHOTREXATE [Suspect]
     Indication: ACUTE LYMPHOCYTIC LEUKAEMIA
  3. VINCRISTINE SULFATE [Suspect]
     Indication: ACUTE LYMPHOCYTIC LEUKAEMIA
  4. METHOTREXATE [Suspect]
     Indication: ACUTE LYMPHOCYTIC LEUKAEMIA
     Dosage: INTRATHECAL
     Route: 037
  5. IFOSFAMIDE [Suspect]
     Indication: ACUTE LYMPHOCYTIC LEUKAEMIA
  6. PREDNISOLONE [Suspect]
     Indication: ACUTE LYMPHOCYTIC LEUKAEMIA
     Dosage: INTRATHECAL
     Route: 037
  7. ETOPOSIDE [Suspect]
     Indication: ACUTE LYMPHOCYTIC LEUKAEMIA
  8. DEXAMETHASONE [Suspect]
     Dosage: 0.5 MG/D; 1 MG/D;
  9. I.V. SOLUTIONS [Concomitant]
  10. ALLOPURINOL [Concomitant]

REACTIONS (14)
  - BLOOD ALBUMIN DECREASED [None]
  - BLOOD LACTATE DEHYDROGENASE INCREASED [None]
  - BLOOD POTASSIUM DECREASED [None]
  - BLOOD SODIUM DECREASED [None]
  - DYSPNOEA [None]
  - GRAND MAL CONVULSION [None]
  - HAEMODIALYSIS [None]
  - HEADACHE [None]
  - HYPERVOLAEMIA [None]
  - REVERSIBLE POSTERIOR LEUKOENCEPHALOPATHY SYNDROME [None]
  - VASOGENIC CEREBRAL OEDEMA [None]
  - VISUAL IMPAIRMENT [None]
  - VOMITING [None]
  - WHITE BLOOD CELL COUNT INCREASED [None]
